FAERS Safety Report 5677381-4 (Version None)
Quarter: 2008Q1

REPORT INFORMATION
  Report Type: 
  Country: None (occurrence: None)
  Receive Date: 20080320
  Receipt Date: 20080320
  Transmission Date: 20080703
  Serious: Yes (Other)
  Sender: FDA-Public Use
  Company Number: None

PATIENT
  Age: 58 Year
  Sex: Male
  Weight: 75 kg

DRUGS (1)
  1. ACYCLOVIR [Suspect]
     Indication: ENCEPHALITIS
     Dosage: 1000MG Q8H IV  DOSE
     Route: 042
     Dates: start: 20080312, end: 20080312

REACTIONS (1)
  - BLOOD CREATININE INCREASED [None]
